FAERS Safety Report 9276126 (Version 1)
Quarter: 2012Q4

REPORT INFORMATION
  Report Type: Spontaneous
  Country: US (occurrence: None)
  Receive Date: 20121109
  Receipt Date: 20121109
  Transmission Date: 20130627
  Serious: Yes (Other)
  Sender: FDA-Public Use
  Company Number: 2012S1000366

PATIENT
  Age: 10 Year
  Sex: Male

DRUGS (4)
  1. CUBICIN [Suspect]
     Indication: CENTRAL LINE INFECTION
     Route: 042
     Dates: start: 20120410
  2. MEROPENEM [Concomitant]
  3. MICAFUMNGIN [Concomitant]
  4. DEXTROSE AND SODIUM CHLORIDE INJECTION [Concomitant]

REACTIONS (1)
  - Thrombosis in device [None]
